FAERS Safety Report 8073623-9 (Version None)
Quarter: 2011Q4

REPORT INFORMATION
  Report Type: 
  Country: None (occurrence: None)
  Receive Date: 20111221
  Receipt Date: 20110816
  Transmission Date: 20120403
  Serious: Yes (Hospitalization)
  Sender: FDA-Public Use
  Company Number: PHEH2009US18417

PATIENT
  Age: 52 Year
  Sex: Female
  Weight: 80.5 kg

DRUGS (2)
  1. EXJADE [Suspect]
     Indication: IRON OVERLOAD
     Dosage: 1625 MG, DAILY, ORAL, 1000 MG, DAILY, ORAL, 500 MG, QD, ORAL
     Route: 048
     Dates: start: 20091123
  2. EXJADE [Suspect]
     Indication: SICKLE CELL ANAEMIA
     Dosage: 1625 MG, DAILY, ORAL, 1000 MG, DAILY, ORAL, 500 MG, QD, ORAL
     Route: 048
     Dates: start: 20091123

REACTIONS (6)
  - SICKLE CELL ANAEMIA [None]
  - ABDOMINAL PAIN UPPER [None]
  - DRUG INTOLERANCE [None]
  - ABDOMINAL DISCOMFORT [None]
  - GASTROINTESTINAL DISORDER [None]
  - SERUM FERRITIN INCREASED [None]
